FAERS Safety Report 7428999-X (Version None)
Quarter: 2011Q2

REPORT INFORMATION
  Report Type: 
  Country: None (occurrence: None)
  Receive Date: 20110421
  Receipt Date: 20110419
  Transmission Date: 20111010
  Serious: Yes (Hospitalization)
  Sender: FDA-Public Use
  Company Number: US-B.I. PHARMACEUTICALS,INC./RIDGEFIELD-2011-BP-03191BP

PATIENT
  Age: 86 Year
  Sex: Male

DRUGS (8)
  1. BENAZEPRIL HYDROCHLORIDE [Concomitant]
  2. PRADAXA [Suspect]
     Indication: ATRIAL FIBRILLATION
     Dosage: 300 MG
     Route: 048
     Dates: start: 20110113, end: 20110126
  3. SOTALOL [Concomitant]
  4. SPIRIVA [Concomitant]
  5. PRAVASTATIN [Concomitant]
  6. AMLODIPINE [Concomitant]
  7. PROVENTIL [Concomitant]
  8. PRADAXA [Suspect]
     Dosage: 150 MG
     Route: 048
     Dates: start: 20110128, end: 20110128

REACTIONS (1)
  - RECTAL HAEMORRHAGE [None]
